FAERS Safety Report 13695456 (Version 1)
Quarter: 2017Q2

REPORT INFORMATION
  Report Type: Spontaneous
  Country: IT (occurrence: IT)
  Receive Date: 20170627
  Receipt Date: 20170627
  Transmission Date: 20170830
  Serious: Yes (Other)
  Sender: FDA-Public Use
  Company Number: IT-B.I. PHARMACEUTICALS,INC./RIDGEFIELD-2017-BI-030718

PATIENT
  Age: 78 Year
  Sex: Male

DRUGS (5)
  1. TORVAST (ATORVASTATIN CALCIUM) [Concomitant]
     Indication: PRODUCT USED FOR UNKNOWN INDICATION
     Route: 065
     Dates: start: 20170524, end: 20170524
  2. OMNIC [Suspect]
     Active Substance: TAMSULOSIN HYDROCHLORIDE
     Route: 048
     Dates: start: 20170618
  3. SELGESSE [Concomitant]
     Indication: BOWEL PREPARATION
     Route: 065
     Dates: start: 20170524, end: 20170524
  4. OMNIC [Suspect]
     Active Substance: TAMSULOSIN HYDROCHLORIDE
     Indication: BENIGN PROSTATIC HYPERPLASIA
     Route: 048
     Dates: start: 201604, end: 20160526
  5. LANSOX (LANSOPRAZOLE) [Concomitant]
     Active Substance: LANSOPRAZOLE
     Indication: PRODUCT USED FOR UNKNOWN INDICATION
     Route: 065
     Dates: start: 20170524, end: 20170524

REACTIONS (2)
  - Visual impairment [Recovering/Resolving]
  - Vitreous detachment [Unknown]

NARRATIVE: CASE EVENT DATE: 2017
